FAERS Safety Report 11564632 (Version 4)
Quarter: 2016Q1

REPORT INFORMATION
  Report Type: Spontaneous
  Country: US (occurrence: US)
  Receive Date: 20150928
  Receipt Date: 20160111
  Transmission Date: 20160525
  Serious: No
  Sender: FDA-Public Use
  Company Number: US-PFIZER INC-2015309056

PATIENT
  Age: 73 Year
  Sex: Female

DRUGS (4)
  1. ABRAXANE [Suspect]
     Active Substance: PACLITAXEL
     Indication: BREAST CANCER METASTATIC
     Dosage: UNK
     Route: 042
     Dates: start: 2011
  2. CYTOXAN [Suspect]
     Active Substance: CYCLOPHOSPHAMIDE
     Indication: BREAST CANCER METASTATIC
     Dosage: UNK
     Route: 042
     Dates: start: 2011
  3. EXEMESTANE. [Concomitant]
     Active Substance: EXEMESTANE
     Dosage: UNK
  4. ADRIAMYCIN [Suspect]
     Active Substance: DOXORUBICIN HYDROCHLORIDE
     Indication: BREAST CANCER METASTATIC
     Dosage: UNK
     Route: 042
     Dates: start: 2011

REACTIONS (2)
  - Disease progression [Not Recovered/Not Resolved]
  - Breast cancer metastatic [Not Recovered/Not Resolved]
